FAERS Safety Report 10100196 (Version 2)
Quarter: 2014Q2

REPORT INFORMATION
  Report Type: Spontaneous
  Country: US (occurrence: US)
  Receive Date: 20140423
  Receipt Date: 20140423
  Transmission Date: 20141212
  Serious: No
  Sender: FDA-Public Use
  Company Number: US-GILEAD-2013-0075393

PATIENT
  Sex: Female

DRUGS (2)
  1. LETAIRIS [Suspect]
     Indication: PULMONARY HYPERTENSION
     Dosage: 5 MG, UNK
     Route: 048
     Dates: start: 20130418
  2. LETAIRIS [Suspect]
     Indication: UNEVALUABLE EVENT

REACTIONS (6)
  - Upper respiratory tract congestion [Unknown]
  - Weight increased [Unknown]
  - Peripheral swelling [Unknown]
  - Peripheral swelling [Unknown]
  - Flushing [Unknown]
  - Swelling [Unknown]
